FAERS Safety Report 5821293-X (Version None)
Quarter: 2008Q3

REPORT INFORMATION
  Report Type: 
  Country: None (occurrence: None)
  Receive Date: 20080722
  Receipt Date: 20080722
  Transmission Date: 20090109
  Serious: Yes (Life-Threatening, Hospitalization, Disabling, Other)
  Sender: FDA-Public Use
  Company Number: None

PATIENT
  Age: 16 Year
  Sex: Male
  Weight: 65.7716 kg

DRUGS (1)
  1. LAMICTAL [Suspect]

REACTIONS (4)
  - HAEMOPTYSIS [None]
  - LIP HAEMORRHAGE [None]
  - MOUTH HAEMORRHAGE [None]
  - STEVENS-JOHNSON SYNDROME [None]
